FAERS Safety Report 19012449 (Version 4)
Quarter: 2021Q3

REPORT INFORMATION
  Report Type: Spontaneous
  Country: JP (occurrence: JP)
  Receive Date: 20210315
  Receipt Date: 20210811
  Transmission Date: 20211014
  Serious: Yes (Death, Hospitalization, Other)
  Sender: FDA-Public Use
  Company Number: JP-BRISTOL-MYERS SQUIBB COMPANY-BMS-2021-018817

PATIENT
  Age: 72 Year
  Sex: Male
  Weight: 50.1 kg

DRUGS (5)
  1. FEBURIC [Concomitant]
     Active Substance: FEBUXOSTAT
     Indication: PRODUCT USED FOR UNKNOWN INDICATION
     Dosage: 20 MG, EVERYDAY, AFTER BREAKFAST
     Route: 048
  2. MAGNESIUM OXIDE. [Concomitant]
     Active Substance: MAGNESIUM OXIDE
     Indication: PRODUCT USED FOR UNKNOWN INDICATION
     Dosage: 250 MG, Q8H, AFTER EVERY MEAL
     Route: 048
  3. OPDIVO [Suspect]
     Active Substance: NIVOLUMAB
     Indication: METASTATIC RENAL CELL CARCINOMA
     Dosage: 240 MILLIGRAM, Q2WK
     Route: 041
     Dates: start: 20201215, end: 20210105
  4. BESACOLIN [Concomitant]
     Active Substance: BETHANECHOL CHLORIDE
     Indication: PRODUCT USED FOR UNKNOWN INDICATION
     Dosage: 0.2 G, EVERYDAY, AFTER BREAKFAST
     Route: 048
  5. SILODOSIN OD [Concomitant]
     Indication: PRODUCT USED FOR UNKNOWN INDICATION
     Dosage: 4 MG, Q12H, AFTER BREAKFAST AND DINNER
     Route: 048

REACTIONS (6)
  - Pericarditis [Fatal]
  - Infusion related reaction [Recovering/Resolving]
  - Oxygen saturation decreased [Recovered/Resolved]
  - Sputum retention [Unknown]
  - Cough [Unknown]
  - Myocarditis [Fatal]

NARRATIVE: CASE EVENT DATE: 20201215
